FAERS Safety Report 13962841 (Version 1)
Quarter: 2017Q3

REPORT INFORMATION
  Report Type: Report from Study
  Country: ES (occurrence: ES)
  Receive Date: 20170913
  Receipt Date: 20170913
  Transmission Date: 20171128
  Serious: Yes (Other)
  Sender: FDA-Public Use
  Company Number: ES-ROCHE-1991406

PATIENT
  Age: 26 Year
  Sex: Male
  Weight: 62 kg

DRUGS (2)
  1. HYDROXYCHLOROQUINE SULPHATE [Concomitant]
     Active Substance: HYDROXYCHLOROQUINE
     Route: 065
  2. RITUXIMAB. [Suspect]
     Active Substance: RITUXIMAB
     Indication: SYSTEMIC LUPUS ERYTHEMATOSUS
     Route: 042
     Dates: start: 20141125

REACTIONS (4)
  - Pneumonia [Recovered/Resolved]
  - Pulmonary alveolar haemorrhage [Recovered/Resolved]
  - Off label use [Unknown]
  - Pulmonary alveolar haemorrhage [Recovered/Resolved]

NARRATIVE: CASE EVENT DATE: 20150707
